FAERS Safety Report 19066229 (Version 1)
Quarter: 2021Q1

REPORT INFORMATION
  Report Type: Spontaneous
  Country: CN (occurrence: CN)
  Receive Date: 20210328
  Receipt Date: 20210328
  Transmission Date: 20210420
  Serious: Yes (Hospitalization, Other)
  Sender: FDA-Public Use
  Company Number: CN-B.I. PHARMACEUTICALS,INC./RIDGEFIELD-2021-BI-091767

PATIENT
  Age: 79 Year
  Sex: Female
  Weight: 50 kg

DRUGS (2)
  1. FLUTICASONE. [Concomitant]
     Active Substance: FLUTICASONE
     Indication: DYSPNOEA
     Route: 055
     Dates: start: 20210317, end: 20210317
  2. ATROVENT [Suspect]
     Active Substance: IPRATROPIUM BROMIDE
     Indication: DYSPNOEA
     Route: 055
     Dates: start: 20210317, end: 20210317

REACTIONS (1)
  - Anaphylactic shock [Recovering/Resolving]

NARRATIVE: CASE EVENT DATE: 20210317
